FAERS Safety Report 7371061-5 (Version None)
Quarter: 2011Q1

REPORT INFORMATION
  Report Type: 
  Country: None (occurrence: None)
  Receive Date: 20110324
  Receipt Date: 20110317
  Transmission Date: 20110831
  Serious: Yes (Other)
  Sender: FDA-Public Use
  Company Number: US-ABBOTT-09P-163-0604805-00

PATIENT
  Age: 6 Day
  Sex: Female

DRUGS (4)
  1. ZIDOVUDINE [Suspect]
     Indication: DRUG EXPOSURE DURING PREGNANCY
     Route: 048
  2. NELFINAVIR MESYLATE [Suspect]
     Indication: DRUG EXPOSURE DURING PREGNANCY
  3. LOPINAVIR/RITONAVIR [Suspect]
     Indication: PROPHYLAXIS AGAINST HIV INFECTION
     Dosage: 300/75 MG/M**2/DOSE EVERY 12 HOURS
     Route: 048
  4. LOPINAVIR/RITONAVIR [Suspect]
     Indication: DRUG EXPOSURE DURING PREGNANCY
     Route: 064

REACTIONS (4)
  - ATRIOVENTRICULAR BLOCK COMPLETE [None]
  - DRUG EXPOSURE DURING PREGNANCY [None]
  - TOXICITY TO VARIOUS AGENTS [None]
  - CONGESTIVE CARDIOMYOPATHY [None]
